FAERS Safety Report 5611814-4 (Version None)
Quarter: 2008Q1

REPORT INFORMATION
  Report Type: 
  Country: None (occurrence: None)
  Receive Date: 20080204
  Receipt Date: 20080129
  Transmission Date: 20080703
  Serious: Yes (Hospitalization)
  Sender: FDA-Public Use
  Company Number: US-JNJFOC-20080106934

PATIENT
  Age: 16 Year
  Sex: Male

DRUGS (2)
  1. EXTRA STRENGTH TYLENOL [Suspect]
     Indication: INTENTIONAL DRUG MISUSE
     Route: 050
  2. HEROIN [Suspect]
     Indication: DRUG ABUSE
     Route: 050

REACTIONS (2)
  - SUBSTANCE ABUSE [None]
  - WITHDRAWAL SYNDROME [None]
